FAERS Safety Report 24343324 (Version 1)
Quarter: 2024Q3

REPORT INFORMATION
  Report Type: Spontaneous
  Country: US (occurrence: US)
  Receive Date: 20240920
  Receipt Date: 20240920
  Transmission Date: 20241017
  Serious: Yes (Death)
  Sender: MYLAN
  Company Number: US-MYLANLABS-2024M1085663

PATIENT
  Age: 52 Year
  Sex: Female

DRUGS (7)
  1. SILDENAFIL [Suspect]
     Active Substance: SILDENAFIL
     Indication: Pulmonary arterial hypertension
     Dosage: 20 MILLIGRAM, TID
     Route: 065
     Dates: end: 202209
  2. EPOPROSTENOL [Suspect]
     Active Substance: EPOPROSTENOL
     Indication: Pulmonary arterial hypertension
     Dosage: UNK
     Route: 042
     Dates: start: 202209
  3. SELEXIPAG [Suspect]
     Active Substance: SELEXIPAG
     Indication: Pulmonary arterial hypertension
     Dosage: RECEIVED 1000-1600MG
     Route: 065
     Dates: start: 2017, end: 2018
  4. SELEXIPAG [Suspect]
     Active Substance: SELEXIPAG
     Dosage: RECEIVED 1000-1600MG
     Route: 065
     Dates: start: 2018, end: 2021
  5. MACITENTAN [Suspect]
     Active Substance: MACITENTAN
     Indication: Pulmonary arterial hypertension
     Dosage: 10 MILLIGRAM
     Route: 065
     Dates: start: 201412, end: 2017
  6. MACITENTAN [Suspect]
     Active Substance: MACITENTAN
     Dosage: 10 MILLIGRAM
     Route: 065
     Dates: start: 2017, end: 2018
  7. MACITENTAN [Suspect]
     Active Substance: MACITENTAN
     Dosage: 10 MILLIGRAM
     Route: 065
     Dates: start: 2018, end: 2021

REACTIONS (1)
  - Drug ineffective [Fatal]

NARRATIVE: CASE EVENT DATE: 20220101
